FAERS Safety Report 10657171 (Version 1)
Quarter: 2014Q4

REPORT INFORMATION
  Report Type: Spontaneous
  Country: FR (occurrence: None)
  Receive Date: 20141215
  Receipt Date: 20141215
  Transmission Date: 20150529
  Serious: Yes (Hospitalization)
  Sender: FDA-Public Use
  Company Number: 2014FR0535

PATIENT
  Age: 16 Year
  Sex: Female

DRUGS (1)
  1. KINERET [Suspect]
     Active Substance: ANAKINRA
     Indication: AUTOINFLAMMATORY DISEASE
     Dosage: 1/2 AMPUOULE DAILY (50 MG, 1 IN 1 D), SUBCUTANEOUS
     Route: 058
     Dates: start: 201404, end: 20140809

REACTIONS (3)
  - Febrile neutropenia [None]
  - Arthralgia [None]
  - Leukopenia [None]

NARRATIVE: CASE EVENT DATE: 20140723
